FAERS Safety Report 4436342-3 (Version None)
Quarter: 2004Q3

REPORT INFORMATION
  Report Type: 
  Country: None (occurrence: None)
  Receive Date: 20040728
  Receipt Date: 20040303
  Transmission Date: 20050211
  Serious: Yes (Hospitalization)
  Sender: FDA-Public Use
  Company Number: 205027

PATIENT
  Age: 44 Year
  Sex: Female
  Weight: 63.5 kg

DRUGS (2)
  1. RITUXAN [Suspect]
     Indication: LYMPHOMA
     Dates: start: 20040201
  2. ALLOPURINOL [Suspect]

REACTIONS (2)
  - ANGIONEUROTIC OEDEMA [None]
  - RASH [None]
